FAERS Safety Report 11606311 (Version 1)
Quarter: 2015Q4

REPORT INFORMATION
  Report Type: Spontaneous
  Country: US (occurrence: US)
  Receive Date: 20151007
  Receipt Date: 20151007
  Transmission Date: 20160304
  Serious: No
  Sender: FDA-Public Use
  Company Number: US-GLAXOSMITHKLINE-US2015100674

PATIENT
  Sex: Female

DRUGS (2)
  1. IMITREX [Suspect]
     Active Substance: SUMATRIPTAN\SUMATRIPTAN SUCCINATE
     Indication: MIGRAINE
     Dosage: 6 MG, PRN
     Route: 042
     Dates: start: 1995
  2. RELPAX [Concomitant]
     Active Substance: ELETRIPTAN HYDROBROMIDE

REACTIONS (7)
  - Injection site haemorrhage [Unknown]
  - Injection site warmth [Unknown]
  - Feeling hot [Unknown]
  - Drug ineffective [Not Recovered/Not Resolved]
  - Palpitations [Unknown]
  - Product quality issue [Unknown]
  - Intentional overdose [Unknown]
